FAERS Safety Report 5289625-1 (Version None)
Quarter: 2007Q2

REPORT INFORMATION
  Report Type: 
  Country: None (occurrence: None)
  Receive Date: 20070406
  Receipt Date: 20070326
  Transmission Date: 20071010
  Serious: Yes (Hospitalization)
  Sender: FDA-Public Use
  Company Number: PHRM2007FR01147

PATIENT
  Age: 26 Year
  Sex: Female

DRUGS (4)
  1. PROPESS [Suspect]
     Indication: INDUCED LABOUR
     Route: 067
     Dates: start: 20070209, end: 20070209
  2. SYNTOCINON [Suspect]
     Indication: INDUCED LABOUR
     Route: 042
     Dates: start: 20070209, end: 20070209
  3. VENTOLIN [Concomitant]
     Indication: ASTHMA
  4. ANAESTHETICS [Concomitant]
     Indication: INDUCED LABOUR
     Route: 008
     Dates: start: 20070209

REACTIONS (9)
  - CEREBROVASCULAR DISORDER [None]
  - CONVULSION [None]
  - HEADACHE [None]
  - MENINGEAL DISORDER [None]
  - MUSCULOSKELETAL STIFFNESS [None]
  - NUCLEAR MAGNETIC RESONANCE IMAGING BRAIN ABNORMAL [None]
  - TETANY [None]
  - TONGUE BITING [None]
  - VOMITING [None]
